FAERS Safety Report 8877357 (Version 1)
Quarter: 2012Q4

REPORT INFORMATION
  Report Type: 
  Country: US (occurrence: US)
  Receive Date: 20121023
  Receipt Date: 20121023
  Transmission Date: 20130627
  Serious: No
  Sender: FDA-Public Use
  Company Number: US-AMGEN-USASP2012059910

PATIENT
  Age: 30 Year
  Sex: Female
  Weight: 34.55 kg

DRUGS (5)
  1. ENBREL [Suspect]
     Indication: PRODUCT USED FOR UNKNOWN INDICATION
     Dosage: 50 mg, qwk
     Route: 058
  2. ZYRTEC [Concomitant]
     Dosage: 5 mg, UNK
  3. TRI-SPRINTEC [Concomitant]
     Dosage: UNK
  4. CELEBREX [Concomitant]
     Dosage: 100 mg, UNK
  5. HUMIRA [Concomitant]
     Dosage: Humira Kit 40 mg/0.8

REACTIONS (2)
  - Therapeutic response decreased [Unknown]
  - Joint swelling [Unknown]
